FAERS Safety Report 24019099 (Version 1)
Quarter: 2024Q2

REPORT INFORMATION
  Report Type: Spontaneous
  Country: US (occurrence: None)
  Receive Date: 20240626
  Receipt Date: 20240626
  Transmission Date: 20240715
  Serious: Yes (Disabling, Other)
  Sender: FDA-Public Use
  Company Number: None

PATIENT
  Sex: Female

DRUGS (1)
  1. FAMOTIDINE [Suspect]
     Active Substance: FAMOTIDINE
     Indication: Gastrooesophageal reflux disease
     Dosage: OTHER QUANTITY : 1 TABLET(S);?FREQUENCY : DAILY;?
     Route: 048
     Dates: start: 20240417, end: 20240504

REACTIONS (7)
  - Confusional state [None]
  - Agitation [None]
  - Blood pressure increased [None]
  - Tachycardia [None]
  - Dyspnoea [None]
  - Therapeutic product effect incomplete [None]
  - Therapy cessation [None]

NARRATIVE: CASE EVENT DATE: 20240502
